FAERS Safety Report 14119263 (Version 2)
Quarter: 2017Q4

REPORT INFORMATION
  Report Type: Spontaneous
  Country: US (occurrence: US)
  Receive Date: 20171024
  Receipt Date: 20171108
  Transmission Date: 20180321
  Serious: No
  Sender: FDA-Public Use
  Company Number: US-PFIZER INC-2017453547

PATIENT
  Sex: Female

DRUGS (1)
  1. LYRICA [Suspect]
     Active Substance: PREGABALIN
     Dosage: 100 MG, UNK

REACTIONS (4)
  - Hypoaesthesia [Unknown]
  - Weight increased [Unknown]
  - Peripheral swelling [Unknown]
  - Paraesthesia [Unknown]
